FAERS Safety Report 8157238-X (Version None)
Quarter: 2012Q1

REPORT INFORMATION
  Report Type: 
  Country: None (occurrence: None)
  Receive Date: 20120222
  Receipt Date: 20120222
  Transmission Date: 20120608
  Serious: Yes (Other)
  Sender: FDA-Public Use
  Company Number: None

PATIENT
  Age: 65 Year
  Sex: Female
  Weight: 72.574 kg

DRUGS (2)
  1. DILTIAZEM [Suspect]
     Indication: ATRIAL FIBRILLATION
     Route: 048
     Dates: start: 20120212, end: 20120221
  2. LORATADINE [Concomitant]
     Indication: ANAPHYLACTIC REACTION
     Dosage: ONE
     Route: 048
     Dates: start: 20120123, end: 20120221

REACTIONS (2)
  - DRUG INEFFECTIVE [None]
  - PRODUCT SUBSTITUTION ISSUE [None]
